FAERS Safety Report 19437820 (Version 1)
Quarter: 2021Q2

REPORT INFORMATION
  Report Type: Other
  Country: FR (occurrence: FR)
  Receive Date: 20210618
  Receipt Date: 20210618
  Transmission Date: 20210717
  Serious: Yes (Other)
  Sender: FDA-Public Use
  Company Number: FR-ROCHE-2846822

PATIENT

DRUGS (8)
  1. VEMURAFENIB. [Suspect]
     Active Substance: VEMURAFENIB
     Indication: GLIONEURONAL TUMOUR
  2. DABRAFENIB [Suspect]
     Active Substance: DABRAFENIB
     Indication: GLIONEURONAL TUMOUR
     Route: 048
  3. DABRAFENIB [Suspect]
     Active Substance: DABRAFENIB
     Indication: GLIONEURONAL TUMOUR
  4. COBIMETINIB. [Suspect]
     Active Substance: COBIMETINIB
     Indication: GLIONEURONAL TUMOUR
  5. VEMURAFENIB. [Suspect]
     Active Substance: VEMURAFENIB
     Indication: GLIONEURONAL TUMOUR
     Route: 048
  6. TRAMETINIB [Suspect]
     Active Substance: TRAMETINIB
     Indication: GLIONEURONAL TUMOUR
  7. TRAMETINIB [Suspect]
     Active Substance: TRAMETINIB
     Indication: GLIONEURONAL TUMOUR
     Route: 048
  8. COBIMETINIB. [Suspect]
     Active Substance: COBIMETINIB
     Indication: GLIONEURONAL TUMOUR
     Dosage: FOR 21 CONSECUTIVE DAYS FOLLOWED BY A 7?DAY BREAK
     Route: 048

REACTIONS (7)
  - Arthralgia [Unknown]
  - Nausea [Unknown]
  - Lymphocytosis [Unknown]
  - Thrombocytopenia [Unknown]
  - Transaminases increased [Unknown]
  - Rash [Unknown]
  - Diarrhoea [Unknown]
